FAERS Safety Report 4992218-4 (Version None)
Quarter: 2006Q2

REPORT INFORMATION
  Report Type: 
  Country: None (occurrence: None)
  Receive Date: 20060502
  Receipt Date: 20060418
  Transmission Date: 20061013
  Serious: Yes (Hospitalization)
  Sender: FDA-Public Use
  Company Number: 2006S1003422

PATIENT
  Age: 39 Year
  Sex: Male
  Weight: 61 kg

DRUGS (8)
  1. FENTANYL TRANSDERMAL SYSTEM [Suspect]
     Indication: CANCER PAIN
     Dosage: 50 UG/HR; Q3D; TRANS; SEE IMAGE
     Route: 062
     Dates: start: 20060101, end: 20060201
  2. FENTANYL TRANSDERMAL SYSTEM [Suspect]
     Indication: CANCER PAIN
     Dosage: 50 UG/HR; Q3D; TRANS; SEE IMAGE
     Route: 062
     Dates: start: 20060201
  3. FENTANYL TRANSDERMAL SYSTEM [Suspect]
     Indication: CANCER PAIN
     Dosage: 200 UG/HR; Q3D; TRANS; SEE IMAGE
     Route: 062
     Dates: start: 20060101, end: 20060201
  4. FENTANYL TRANSDERMAL SYSTEM [Suspect]
     Indication: CANCER PAIN
     Dosage: 200 UG/HR; Q3D; TRANS; SEE IMAGE
     Route: 062
     Dates: start: 20060201
  5. OXYCODONE (60 MG) [Suspect]
     Indication: CANCER PAIN
     Dosage: 60 MG; PRN; ORAL
     Route: 048
     Dates: start: 20060101
  6. METHADONE HCL [Suspect]
     Indication: CANCER PAIN
     Dosage: 60 MG; Q8H; ORAL; SEE IMAGE
     Route: 048
     Dates: start: 20060404
  7. METHADONE HCL [Suspect]
     Indication: CANCER PAIN
     Dosage: 60 MG; Q8H; ORAL; SEE IMAGE
     Route: 048
     Dates: start: 20060404
  8. PREDNISONE TAB [Concomitant]

REACTIONS (4)
  - BONE CANCER METASTATIC [None]
  - DEVICE FAILURE [None]
  - INADEQUATE ANALGESIA [None]
  - PHARMACEUTICAL PRODUCT COMPLAINT [None]
